FAERS Safety Report 12516910 (Version 2)
Quarter: 2016Q3

REPORT INFORMATION
  Report Type: Spontaneous
  Country: US (occurrence: US)
  Receive Date: 20160630
  Receipt Date: 20160815
  Transmission Date: 20161109
  Serious: Yes (Hospitalization)
  Sender: FDA-Public Use
  Company Number: US-TEVA-672690USA

PATIENT
  Age: 50 Year
  Sex: Female
  Weight: 48.58 kg

DRUGS (6)
  1. SYNRIBO [Suspect]
     Active Substance: OMACETAXINE MEPESUCCINATE
     Indication: CHRONIC MYELOID LEUKAEMIA
     Dosage: HOME ADMINSTRATION
     Dates: start: 20160317
  2. TYLENOL [Concomitant]
     Active Substance: ACETAMINOPHEN
  3. PROMETHAZINE [Concomitant]
     Active Substance: PROMETHAZINE\PROMETHAZINE HYDROCHLORIDE
  4. PHENERGAN [Concomitant]
     Active Substance: PROMETHAZINE HYDROCHLORIDE
     Indication: NAUSEA
  5. HYDROXYUREA. [Concomitant]
     Active Substance: HYDROXYUREA
  6. ENSURE ENLIVE [Concomitant]

REACTIONS (3)
  - Laboratory test abnormal [Recovering/Resolving]
  - Dehydration [Recovered/Resolved]
  - Drug dose omission [Unknown]

NARRATIVE: CASE EVENT DATE: 20160625
